FAERS Safety Report 20089421 (Version 1)
Quarter: 2021Q4

REPORT INFORMATION
  Report Type: Spontaneous
  Country: US (occurrence: None)
  Receive Date: 20211119
  Receipt Date: 20211119
  Transmission Date: 20220303
  Serious: No
  Sender: FDA-Public Use
  Company Number: US-Hikma Pharmaceuticals USA Inc.-US-H14001-21-03218

PATIENT
  Sex: Male

DRUGS (1)
  1. IPRATROPIUM BROMIDE [Suspect]
     Active Substance: IPRATROPIUM BROMIDE
     Indication: Sinus disorder
     Dosage: TWO SPRAYS IN EACH NOSTRIL (42 MCG/SPRAY)
     Route: 045
     Dates: end: 20210702

REACTIONS (4)
  - Throat irritation [Unknown]
  - Cough [Unknown]
  - Dysphonia [Unknown]
  - Nausea [Unknown]
